FAERS Safety Report 4966400-6 (Version None)
Quarter: 2006Q2

REPORT INFORMATION
  Report Type: 
  Country: None (occurrence: None)
  Receive Date: 20060407
  Receipt Date: 20051013
  Transmission Date: 20061013
  Serious: Yes (Hospitalization)
  Sender: FDA-Public Use
  Company Number: US-MERCK-0510USA07181

PATIENT
  Age: 41 Year
  Sex: Female
  Weight: 84 kg

DRUGS (9)
  1. VIOXX [Suspect]
     Indication: MUSCLE SPASMS
     Route: 048
     Dates: start: 20000912, end: 20040101
  2. VIOXX [Suspect]
     Indication: MYALGIA
     Route: 048
     Dates: start: 20000912, end: 20040101
  3. NITROFURANTOIN [Concomitant]
     Route: 065
  4. URISPAS [Concomitant]
     Route: 065
  5. CYCLOBENZAPRINE HYDROCHLORIDE [Concomitant]
     Route: 048
  6. METHOCARBAMOL [Concomitant]
     Route: 065
     Dates: start: 20000101
  7. ECOTRIN [Concomitant]
     Route: 065
     Dates: start: 20000101
  8. PLAVIX [Concomitant]
     Route: 065
     Dates: start: 20001207
  9. FUROSEMIDE [Concomitant]
     Indication: OEDEMA
     Route: 065
     Dates: start: 20010116

REACTIONS (8)
  - ANXIETY [None]
  - BLOOD CHOLESTEROL INCREASED [None]
  - CORONARY ARTERY DISEASE [None]
  - DEPRESSION [None]
  - GASTROOESOPHAGEAL REFLUX DISEASE [None]
  - HYPERTENSION [None]
  - PULMONARY EMBOLISM [None]
  - SLEEP DISORDER [None]
